FAERS Safety Report 8117248-5 (Version None)
Quarter: 2012Q1

REPORT INFORMATION
  Report Type: 
  Country: None (occurrence: None)
  Receive Date: 20120206
  Receipt Date: 20120201
  Transmission Date: 20120608
  Serious: No
  Sender: FDA-Public Use
  Company Number: US-PFIZER INC-2012028289

PATIENT
  Sex: Female
  Weight: 70.295 kg

DRUGS (2)
  1. VENLAFAXINE HCL [Suspect]
     Dosage: 225 MG, 1X/DAY
     Route: 048
     Dates: start: 20100101, end: 20100801
  2. VENLAFAXINE HCL [Suspect]
     Indication: TRIGEMINAL NEURALGIA
     Dosage: 75 MG, 1X/DAY
     Route: 048
     Dates: start: 20100601, end: 20100101

REACTIONS (5)
  - DEPRESSED MOOD [None]
  - PAIN [None]
  - DIARRHOEA [None]
  - INSOMNIA [None]
  - FATIGUE [None]
